FAERS Safety Report 8838331 (Version 2)
Quarter: 2012Q4

REPORT INFORMATION
  Report Type: 
  Country: US (occurrence: US)
  Receive Date: 20121012
  Receipt Date: 20121121
  Transmission Date: 20130627
  Serious: No
  Sender: FDA-Public Use
  Company Number: US-PFIZER INC-2012252355

PATIENT
  Age: 47 Year
  Sex: Male
  Weight: 107 kg

DRUGS (6)
  1. LYRICA [Suspect]
     Indication: ARTHRITIS
     Dosage: 150 mg, 2x/day
     Route: 048
     Dates: start: 20120813
  2. LYRICA [Suspect]
     Indication: BONE SPUR
     Dosage: 50 mg, 2x/day
     Route: 048
     Dates: start: 201210
  3. LYRICA [Suspect]
     Indication: LOW BACK PAIN
  4. CITALOPRAM [Concomitant]
     Dosage: 40 mg, 1x/day
  5. WELLBUTRIN [Concomitant]
     Dosage: 100 twice daily
  6. MELATONIN [Concomitant]
     Dosage: 9 mg, at hs

REACTIONS (2)
  - Epistaxis [Unknown]
  - Off label use [Unknown]
